FAERS Safety Report 4375696-3 (Version None)
Quarter: 2004Q2

REPORT INFORMATION
  Report Type: 
  Country: None (occurrence: None)
  Receive Date: 20040607
  Receipt Date: 20040521
  Transmission Date: 20050107
  Serious: Yes (Hospitalization)
  Sender: FDA-Public Use
  Company Number: DALBA-10171

PATIENT
  Age: 57 Year
  Sex: Female

DRUGS (3)
  1. CEFAZOLIN [Suspect]
     Indication: POSTOPERATIVE INFECTION
     Dosage: 1500 MG IV
     Route: 042
     Dates: start: 20040423, end: 20040428
  2. LEVOTHYROXINE SODIUM [Concomitant]
  3. PANTOPRAZOLE [Concomitant]

REACTIONS (9)
  - ALCOHOL WITHDRAWAL SYNDROME [None]
  - ALCOHOLISM [None]
  - ANXIETY [None]
  - DELIRIUM [None]
  - GASTRITIS EROSIVE [None]
  - HYPERTHYROIDISM [None]
  - HYPOKALAEMIA [None]
  - HYPOMAGNESAEMIA [None]
  - PANCREATITIS ACUTE [None]
